FAERS Safety Report 4819161-5 (Version None)
Quarter: 2005Q4

REPORT INFORMATION
  Report Type: 
  Country: None (occurrence: None)
  Receive Date: 20051102
  Receipt Date: 20051102
  Transmission Date: 20060501
  Serious: Yes (Hospitalization)
  Sender: FDA-Public Use
  Company Number: None

PATIENT
  Age: 83 Year
  Sex: Male
  Weight: 70 kg

DRUGS (15)
  1. ENBREL [Suspect]
     Indication: RHEUMATOID ARTHRITIS
     Dosage: 25MG  TWICE A WEEK  SQ
     Route: 058
     Dates: start: 20050505, end: 20050826
  2. PREDNISONE [Suspect]
     Indication: RHEUMATOID ARTHRITIS
     Dosage: 7.5MG   DAILY  PO
     Route: 048
     Dates: start: 20040715, end: 20050826
  3. ACTONEL [Concomitant]
  4. AMARYL [Concomitant]
  5. ASPIRIN [Concomitant]
  6. ASTELIN [Concomitant]
  7. B COMPLEX VITAMINS PLUS [Concomitant]
  8. BENICAR [Concomitant]
  9. CALTRATE [Concomitant]
  10. CENTRUM SILVER [Concomitant]
  11. EFFEXOR [Concomitant]
  12. HALCION [Concomitant]
  13. IMDUR [Concomitant]
  14. LUNESTA [Concomitant]
  15. METFORMIN HCL [Concomitant]

REACTIONS (2)
  - BACTERAEMIA [None]
  - LISTERIOSIS [None]
